FAERS Safety Report 23536247 (Version 1)
Quarter: 2024Q1

REPORT INFORMATION
  Report Type: Spontaneous
  Country: US (occurrence: US)
  Receive Date: 20240219
  Receipt Date: 20240219
  Transmission Date: 20240410
  Serious: No
  Sender: FDA-Public Use
  Company Number: US-SA-SAC20240209000828

PATIENT
  Sex: Female

DRUGS (1)
  1. DUPIXENT [Suspect]
     Active Substance: DUPILUMAB
     Indication: Dermatitis atopic
     Dosage: 200 MG, QOW
     Route: 058
     Dates: start: 202201

REACTIONS (7)
  - Peripheral swelling [Unknown]
  - Lip swelling [Unknown]
  - Eye swelling [Unknown]
  - Urticaria [Unknown]
  - Pain in extremity [Unknown]
  - Arthralgia [Unknown]
  - Hypersensitivity [Unknown]
